FAERS Safety Report 7731420-5 (Version None)
Quarter: 2011Q3

REPORT INFORMATION
  Report Type: 
  Country: None (occurrence: None)
  Receive Date: 20110906
  Receipt Date: 20110531
  Transmission Date: 20111222
  Serious: No
  Sender: FDA-Public Use
  Company Number: US-AMGEN-USASP2011028023

PATIENT
  Sex: Female

DRUGS (7)
  1. FOLIC ACID [Concomitant]
  2. PREDNISONE [Concomitant]
  3. PROLIA [Suspect]
     Indication: OSTEOPOROSIS POSTMENOPAUSAL
     Dosage: 60 MG, Q6MO
     Dates: start: 20110401
  4. ANTIHYPERTENSIVES [Concomitant]
  5. HYDROCODONE [Concomitant]
  6. METHOTREXATE [Concomitant]
  7. REMICADE [Concomitant]

REACTIONS (2)
  - SENSATION OF HEAVINESS [None]
  - MUSCLE SPASMS [None]
